FAERS Safety Report 25543985 (Version 1)
Quarter: 2025Q3

REPORT INFORMATION
  Report Type: Spontaneous
  Country: US (occurrence: None)
  Receive Date: 20250711
  Receipt Date: 20250711
  Transmission Date: 20251021
  Serious: Yes (Hospitalization)
  Sender: FDA-CTU
  Company Number: None

PATIENT
  Sex: Female

DRUGS (11)
  1. LENALIDOMIDE [Suspect]
     Active Substance: LENALIDOMIDE
     Indication: Plasma cell myeloma
     Dosage: FREQUENCY : DAILY;?
     Route: 048
     Dates: start: 20250619
  2. ACYCLOVIR [Concomitant]
     Active Substance: ACYCLOVIR
  3. AMLODIPINE [Concomitant]
     Active Substance: AMLODIPINE BESYLATE
  4. CARVEDILOL [Concomitant]
     Active Substance: CARVEDILOL
  5. DARZALEX SOL [Concomitant]
  6. DEXAMETHASON POW ACETATE [Concomitant]
  7. ESTRACE VAG CRE [Concomitant]
  8. FLUTICASONE SPR [Concomitant]
  9. HYDROCO/APAP TAB [Concomitant]
  10. LENALIDOMIDE [Concomitant]
     Active Substance: LENALIDOMIDE
  11. MONTELUKAST SODIUM [Concomitant]
     Active Substance: MONTELUKAST SODIUM

REACTIONS (2)
  - Acute kidney injury [None]
  - Dehydration [None]
